FAERS Safety Report 8296591-3 (Version None)
Quarter: 2012Q2

REPORT INFORMATION
  Report Type: 
  Country: None (occurrence: None)
  Receive Date: 20120418
  Receipt Date: 20120418
  Transmission Date: 20120825
  Serious: No
  Sender: FDA-Public Use
  Company Number: None

PATIENT
  Sex: Female
  Weight: 68.038 kg

DRUGS (1)
  1. METADATE CD [Suspect]
     Route: 048
     Dates: start: 20120321, end: 20120409

REACTIONS (3)
  - MALAISE [None]
  - CAPSULE PHYSICAL ISSUE [None]
  - PRODUCT PACKAGING QUANTITY ISSUE [None]
